FAERS Safety Report 13965752 (Version 1)
Quarter: 2017Q3

REPORT INFORMATION
  Report Type: Spontaneous
  Country: DE (occurrence: DE)
  Receive Date: 20170913
  Receipt Date: 20170913
  Transmission Date: 20171128
  Serious: Yes (Hospitalization)
  Sender: FDA-Public Use
  Company Number: DE-TEVA-804012GER

PATIENT
  Age: 57 Year
  Sex: Female

DRUGS (21)
  1. ABILIFY [Interacting]
     Active Substance: ARIPIPRAZOLE
     Dates: start: 20161225, end: 20170112
  2. SEROQUEL XR [Concomitant]
     Active Substance: QUETIAPINE FUMARATE
     Dates: start: 20170206, end: 20170220
  3. ABILIFY [Interacting]
     Active Substance: ARIPIPRAZOLE
     Dates: start: 20161213, end: 20161224
  4. SEROQUEL XR [Concomitant]
     Active Substance: QUETIAPINE FUMARATE
     Dates: start: 20170203, end: 20170205
  5. FLUOXETIN [Interacting]
     Active Substance: FLUOXETINE HYDROCHLORIDE
     Dates: start: 20161219, end: 20170102
  6. SEROQUEL XR [Concomitant]
     Active Substance: QUETIAPINE FUMARATE
     Dates: start: 20170113, end: 20170118
  7. SEROQUEL XR [Concomitant]
     Active Substance: QUETIAPINE FUMARATE
     Dates: start: 20170221
  8. SERTRALIN STADA [Concomitant]
     Active Substance: SERTRALINE HYDROCHLORIDE
     Dates: start: 20170203
  9. TREVILOR RETARD [Concomitant]
     Active Substance: VENLAFAXINE HYDROCHLORIDE
     Dates: start: 201607
  10. AKINETON [Concomitant]
     Active Substance: BIPERIDEN HYDROCHLORIDE
     Dates: start: 20170118, end: 20170207
  11. DEKRISTOL [Concomitant]
     Active Substance: CHOLECALCIFEROL
  12. ABILIFY [Interacting]
     Active Substance: ARIPIPRAZOLE
     Dates: start: 20160705, end: 20161128
  13. AKINETON [Concomitant]
     Active Substance: BIPERIDEN HYDROCHLORIDE
     Dates: start: 20161224, end: 20170117
  14. SERTRALIN STADA [Concomitant]
     Active Substance: SERTRALINE HYDROCHLORIDE
     Dates: start: 20170119, end: 20170202
  15. FLUOXETIN [Suspect]
     Active Substance: FLUOXETINE HYDROCHLORIDE
     Dates: start: 20161213, end: 20161218
  16. SEROQUEL XR [Concomitant]
     Active Substance: QUETIAPINE FUMARATE
     Dates: start: 20170104, end: 20170112
  17. SEROQUEL XR [Concomitant]
     Active Substance: QUETIAPINE FUMARATE
     Dates: start: 20170119, end: 20170202
  18. SERTRALIN STADA [Concomitant]
     Active Substance: SERTRALINE HYDROCHLORIDE
     Dates: start: 20170104, end: 20170112
  19. RISEDRONAT AL [Concomitant]
  20. ABILIFY [Interacting]
     Active Substance: ARIPIPRAZOLE
     Dates: start: 20161129, end: 20161212
  21. SERTRALIN STADA [Concomitant]
     Active Substance: SERTRALINE HYDROCHLORIDE
     Dates: start: 20170113, end: 20170118

REACTIONS (5)
  - Parkinsonian gait [Recovered/Resolved]
  - Hypokinesia [Recovered/Resolved]
  - Reduced facial expression [Recovered/Resolved]
  - Cogwheel rigidity [Recovered/Resolved]
  - Drug interaction [Unknown]

NARRATIVE: CASE EVENT DATE: 20161205
